FAERS Safety Report 12162351 (Version 1)
Quarter: 2016Q1

REPORT INFORMATION
  Report Type: Spontaneous
  Country: US (occurrence: None)
  Receive Date: 20160308
  Receipt Date: 20160308
  Transmission Date: 20160526
  Serious: Yes (Hospitalization)
  Sender: FDA-Public Use
  Company Number: None

PATIENT
  Age: 63 Year
  Sex: Female
  Weight: 126.9 kg

DRUGS (21)
  1. PROVENTIL [Concomitant]
     Active Substance: ALBUTEROL
  2. LOPRESSOR [Concomitant]
     Active Substance: METOPROLOL TARTRATE
  3. ZOFRAN [Concomitant]
     Active Substance: ONDANSETRON HYDROCHLORIDE
  4. PAROXETINE [Concomitant]
     Active Substance: PAROXETINE\PAROXETINE HYDROCHLORIDE
  5. DELTASONE [Concomitant]
     Active Substance: PREDNISONE
  6. SENNA [Concomitant]
     Active Substance: SENNA LEAF\SENNOSIDES\SENNOSIDES A AND B
  7. XANAX [Concomitant]
     Active Substance: ALPRAZOLAM
  8. LASIX [Concomitant]
     Active Substance: FUROSEMIDE
  9. ELIQUIS [Suspect]
     Active Substance: APIXABAN
     Indication: ATRIAL FLUTTER
     Route: 048
  10. COLACE [Concomitant]
     Active Substance: DOCUSATE SODIUM
  11. SINGULAIR [Concomitant]
     Active Substance: MONTELUKAST SODIUM
  12. TRANXEN [Concomitant]
     Active Substance: CLORAZEPATE DIPOTASSIUM
  13. FLONASE [Concomitant]
     Active Substance: FLUTICASONE PROPIONATE
  14. NPH INSULIN [Concomitant]
     Active Substance: INSULIN BEEF
  15. DIOVAN [Concomitant]
     Active Substance: VALSARTAN
  16. APAP [Concomitant]
     Active Substance: ACETAMINOPHEN
  17. SYMBICORT [Concomitant]
     Active Substance: BUDESONIDE\FORMOTEROL FUMARATE DIHYDRATE
  18. OXYCODONE [Concomitant]
     Active Substance: OXYCODONE
  19. TOPROL XL [Concomitant]
     Active Substance: METOPROLOL SUCCINATE
  20. ALDACTONE [Concomitant]
     Active Substance: SPIRONOLACTONE
  21. ELIQUIS [Suspect]
     Active Substance: APIXABAN
     Indication: NEPHRECTOMY
     Route: 048

REACTIONS (5)
  - Renal failure [None]
  - Hypotension [None]
  - Haemorrhagic anaemia [None]
  - Intra-abdominal haemorrhage [None]
  - Flank pain [None]

NARRATIVE: CASE EVENT DATE: 20160112
